FAERS Safety Report 4633588-6 (Version None)
Quarter: 2005Q2

REPORT INFORMATION
  Report Type: 
  Country: None (occurrence: None)
  Receive Date: 20050412
  Receipt Date: 20050412
  Transmission Date: 20051028
  Serious: Yes (Hospitalization)
  Sender: FDA-Public Use
  Company Number: None

PATIENT
  Age: 73 Year
  Sex: Male
  Weight: 90.3 kg

DRUGS (26)
  1. FUROSEMIDE [Suspect]
  2. NITROGLYCERIN [Concomitant]
  3. POTASSIUM CHLORIDE [Concomitant]
  4. ACETYLCYSTERINE SOLN, INHL [Concomitant]
  5. AZITHROMYCIN [Concomitant]
  6. ENOXAPARIN SODIUM [Concomitant]
  7. WARFARIN SODIUM [Concomitant]
  8. NPH INSULIN [Concomitant]
  9. INSULIN HUMAN REGULAR [Concomitant]
  10. HEPARIN [Concomitant]
  11. GUAIFENSIN /CODEINE [Concomitant]
  12. OSPSPRBODE DOMOTRATE [Concomitant]
  13. IPRATROPIUM SOLUTION [Concomitant]
  14. ALBUTEROL [Concomitant]
  15. DILTIAZEM [Concomitant]
  16. FLUNISOLIDE INHAL [Concomitant]
  17. OMEPRAZOLE [Concomitant]
  18. ALBUTEROL INHAL [Concomitant]
  19. FELODIPINE [Concomitant]
  20. IPRATROPIUM/ALBUTEROL INH [Concomitant]
  21. MOTRPG;UCEROM [Concomitant]
  22. IRBESARTAN [Concomitant]
  23. FOLIC ACID [Concomitant]
  24. ASPIRIN [Concomitant]
  25. METHYLPREDNISOLONE [Concomitant]
  26. METOPROLOL TARTRATE [Concomitant]

REACTIONS (1)
  - RENAL FAILURE ACUTE [None]
